FAERS Safety Report 20946039 (Version 1)
Quarter: 2022Q2

REPORT INFORMATION
  Report Type: Spontaneous
  Country: US (occurrence: US)
  Receive Date: 20220610
  Receipt Date: 20220610
  Transmission Date: 20220720
  Serious: Yes (Hospitalization)
  Sender: FDA-Public Use
  Company Number: US-MYLANLABS-2022M1044325

PATIENT
  Age: 45 Year
  Sex: Female

DRUGS (5)
  1. CLOZAPINE [Suspect]
     Active Substance: CLOZAPINE
     Indication: Schizophrenia
     Dosage: 350 MILLIGRAM, QD,OVER 4 WEEKS
  2. CLOZAPINE [Suspect]
     Active Substance: CLOZAPINE
     Dosage: DAILY DOSE OF CLOZAPINE WAS REDUCED TO 200MG
  3. CLONAZEPAM [Concomitant]
     Active Substance: CLONAZEPAM
     Indication: Schizophrenia
     Dosage: 2 MILLIGRAM, QD
  4. CLONAZEPAM [Concomitant]
     Active Substance: CLONAZEPAM
     Dosage: DOSE OF CLONAZEPAM WAS ALSO REDUCED
  5. VALPROIC ACID [Concomitant]
     Active Substance: VALPROIC ACID
     Indication: Schizophrenia
     Dosage: 1000 MILLIGRAM, QD

REACTIONS (5)
  - Lethargy [Recovering/Resolving]
  - Sedation [Recovering/Resolving]
  - Salivary hypersecretion [Recovering/Resolving]
  - Gait disturbance [Recovered/Resolved]
  - Toxicity to various agents [Recovering/Resolving]
